FAERS Safety Report 5124838-0 (Version None)
Quarter: 2006Q4

REPORT INFORMATION
  Report Type: 
  Country: None (occurrence: None)
  Receive Date: 20061006
  Receipt Date: 20060925
  Transmission Date: 20070319
  Serious: Yes (Life-Threatening, Hospitalization, Disabling, Other)
  Sender: FDA-Public Use
  Company Number: 2006115126

PATIENT
  Age: 43 Year
  Sex: Male
  Weight: 73.3 kg

DRUGS (9)
  1. SUTENT [Suspect]
     Indication: RENAL CELL CARCINOMA STAGE UNSPECIFIED
     Dosage: 50 MG (50 MG, 1 IN 1 D), ORAL
     Route: 048
     Dates: start: 20060526, end: 20060913
  2. MS CONTIN [Concomitant]
  3. OXYCODONE HCL [Concomitant]
  4. ACETAMINOPHEN [Concomitant]
  5. AMITRIPTYLINE HCL [Concomitant]
  6. HERBAL PREPARATION (HERBAL PREPARATION) [Concomitant]
  7. VITAMIN B12 [Concomitant]
  8. FENTANYL [Concomitant]
  9. PREVACID [Concomitant]

REACTIONS (4)
  - INADEQUATE ANALGESIA [None]
  - METASTASES TO BONE [None]
  - METASTATIC PAIN [None]
  - PNEUMONIA [None]
